FAERS Safety Report 7269343-0 (Version None)
Quarter: 2011Q1

REPORT INFORMATION
  Report Type: 
  Country: None (occurrence: None)
  Receive Date: 20110124
  Receipt Date: 20110108
  Transmission Date: 20110831
  Serious: Yes (Other)
  Sender: FDA-Public Use
  Company Number: DSA_44650_2011

PATIENT
  Sex: Male

DRUGS (2)
  1. DOMINAL /00018902/ (DOMINAL FORTE - PROTHIPENDYL HYDROCHLORIDE ) 80 MG [Suspect]
     Indication: PRODUCT USED FOR UNKNOWN INDICATION
     Dosage: (800 MG 1X ORAL)
     Route: 048
     Dates: start: 20110108, end: 20110108
  2. ELONTRIL (ELONTRIL - BUPROPION HYDROCHLORIDE EXTENDED RELEASE) 150 MG [Suspect]
     Indication: PRODUCT USED FOR UNKNOWN INDICATION
     Dosage: (1500 MG 1X ORAL)
     Route: 048
     Dates: start: 20110108, end: 20110108

REACTIONS (4)
  - SUICIDE ATTEMPT [None]
  - HYPERTENSION [None]
  - BRADYPHRENIA [None]
  - MULTIPLE DRUG OVERDOSE INTENTIONAL [None]
